FAERS Safety Report 7111005-4 (Version None)
Quarter: 2010Q4

REPORT INFORMATION
  Report Type: 
  Country: None (occurrence: None)
  Receive Date: 20101118
  Receipt Date: 20101109
  Transmission Date: 20110411
  Serious: Yes (Other)
  Sender: FDA-Public Use
  Company Number: JP-MERCK-1011USA01633

PATIENT
  Age: 49 Year
  Sex: Female
  Weight: 58 kg

DRUGS (6)
  1. PEPCID [Suspect]
     Indication: ANAESTHETIC PREMEDICATION
     Route: 030
  2. MIDAZOLAM [Concomitant]
     Route: 030
  3. THIOPENTAL SODIUM [Concomitant]
     Route: 065
  4. VECURONIUM BROMIDE [Concomitant]
     Route: 065
  5. FENTANYL [Concomitant]
     Route: 065
  6. ISOFLURANE [Concomitant]
     Route: 065

REACTIONS (1)
  - LUNG DISORDER [None]
